FAERS Safety Report 21609906 (Version 1)
Quarter: 2022Q4

REPORT INFORMATION
  Report Type: Spontaneous
  Country: AU (occurrence: AU)
  Receive Date: 20221117
  Receipt Date: 20221117
  Transmission Date: 20230113
  Serious: Yes (Other)
  Sender: FDA-Public Use
  Company Number: None

PATIENT
  Age: 32 Year
  Sex: Female

DRUGS (6)
  1. IBUPROFEN [Suspect]
     Active Substance: IBUPROFEN
     Indication: Migraine
     Dosage: 25 DOSAGE FORM, WEEKLY
     Route: 065
  2. IBUPROFEN [Suspect]
     Active Substance: IBUPROFEN
     Dosage: 20 DOSAGE FORM, WEEKLY
     Route: 065
  3. IBUPROFEN [Suspect]
     Active Substance: IBUPROFEN
     Dosage: UNK
     Route: 065
  4. IBUPROFEN [Suspect]
     Active Substance: IBUPROFEN
     Dosage: 200 MG
     Route: 065
  5. CITALOPRAM [Concomitant]
     Active Substance: CITALOPRAM HYDROBROMIDE
     Indication: Product used for unknown indication
     Dosage: 20 MG, QD
     Route: 065
  6. CODEINE PHOSPHATE [Concomitant]
     Active Substance: CODEINE PHOSPHATE
     Indication: Migraine
     Dosage: 12.8 MG
     Route: 065

REACTIONS (13)
  - Renal tubular acidosis [Unknown]
  - Hypokalaemia [Recovered/Resolved]
  - Paralysis [Recovered/Resolved]
  - Erosive oesophagitis [Unknown]
  - Gastric ulcer [Unknown]
  - Abdominal pain upper [Recovered/Resolved]
  - Toxicity to various agents [Unknown]
  - Electrocardiogram ST segment depression [Recovered/Resolved]
  - Abdominal tenderness [Recovered/Resolved]
  - Asthenia [Recovered/Resolved]
  - Electrocardiogram U wave present [Recovered/Resolved]
  - Oedematous kidney [Unknown]
  - Drug abuse [Recovered/Resolved]
